FAERS Safety Report 16066066 (Version 1)
Quarter: 2019Q1

REPORT INFORMATION
  Report Type: Spontaneous
  Country: IT (occurrence: IT)
  Receive Date: 20190313
  Receipt Date: 20190313
  Transmission Date: 20190418
  Serious: Yes (Hospitalization)
  Sender: FDA-Public Use
  Company Number: IT-ACCORD-112312

PATIENT
  Age: 58 Year
  Sex: Female

DRUGS (7)
  1. OXALIPLATIN. [Suspect]
     Active Substance: OXALIPLATIN
     Indication: COLORECTAL ADENOCARCINOMA
     Route: 042
     Dates: start: 20180626
  2. CAPECITABINA MEDAC [Concomitant]
     Active Substance: CAPECITABINE
     Dates: start: 20180626
  3. OMEPRAZOLE. [Concomitant]
     Active Substance: OMEPRAZOLE
  4. RANITIDINE. [Concomitant]
     Active Substance: RANITIDINE
  5. SOLDESAM [Concomitant]
     Active Substance: DEXAMETHASONE
  6. CETIRIZINE [Concomitant]
     Active Substance: CETIRIZINE HYDROCHLORIDE
  7. ONDANSETRONE ACCORD [Concomitant]

REACTIONS (5)
  - Agitation [Recovered/Resolved]
  - Confusional state [Recovered/Resolved]
  - Dyspnoea [Recovered/Resolved]
  - Laryngospasm [Recovered/Resolved]
  - Hypoxia [Recovered/Resolved]

NARRATIVE: CASE EVENT DATE: 20180917
